FAERS Safety Report 7555279-4 (Version None)
Quarter: 2011Q2

REPORT INFORMATION
  Report Type: 
  Country: None (occurrence: None)
  Receive Date: 20110617
  Receipt Date: 20110613
  Transmission Date: 20111010
  Serious: Yes (Death, Disabling, Other)
  Sender: FDA-Public Use
  Company Number: PHHY2011NZ06212

PATIENT
  Sex: Male

DRUGS (5)
  1. CITALOPRAM HYDROBROMIDE [Concomitant]
     Dosage: 60 MG, MANE
  2. CLOZAPINE [Suspect]
     Indication: SCHIZOPHRENIA
     Dosage: 100 MG, MANE
     Dates: start: 20040428
  3. CLOZAPINE [Suspect]
     Dosage: 250 MG, NOCTE
  4. VALPROATE SODIUM [Concomitant]
     Dosage: 1000 MG, NOCTE
  5. CLONAZEPAM [Concomitant]
     Dosage: 0.5 MG, BD PRN

REACTIONS (5)
  - FALL [None]
  - FEMORAL NECK FRACTURE [None]
  - PULMONARY EMBOLISM [None]
  - ILEUS [None]
  - HIP FRACTURE [None]
